FAERS Safety Report 6438639-4 (Version None)
Quarter: 2009Q4

REPORT INFORMATION
  Report Type: 
  Country: None (occurrence: None)
  Receive Date: 20091112
  Receipt Date: 20091030
  Transmission Date: 20100525
  Serious: Yes (Other)
  Sender: FDA-Public Use
  Company Number: DE-MYLANLABS-2009S1018987

PATIENT
  Age: 51 Year
  Sex: Male
  Weight: 106 kg

DRUGS (3)
  1. PRAVASTATIN [Suspect]
     Indication: LOW DENSITY LIPOPROTEIN INCREASED
     Route: 048
     Dates: start: 20090128
  2. MARCUMAR [Concomitant]
     Indication: DRUG USE FOR UNKNOWN INDICATION
  3. CONCOR [Concomitant]
     Indication: DRUG USE FOR UNKNOWN INDICATION
     Dosage: DAILY DOSE: 2.5 MG MILLGRAM(S) EVERY DAYS
     Route: 048

REACTIONS (1)
  - MUSCLE RUPTURE [None]
